FAERS Safety Report 16856846 (Version 1)
Quarter: 2019Q3

REPORT INFORMATION
  Report Type: Spontaneous
  Country: US (occurrence: US)
  Receive Date: 20190926
  Receipt Date: 20190926
  Transmission Date: 20191005
  Serious: Yes (Other)
  Sender: FDA-Public Use
  Company Number: US-RADIUS HEALTH INC.-2019US002637

PATIENT
  Age: 67 Year
  Sex: Female

DRUGS (1)
  1. TYMLOS [Suspect]
     Active Substance: ABALOPARATIDE
     Indication: OSTEOPOROSIS POSTMENOPAUSAL
     Dosage: 80 MCG
     Route: 058

REACTIONS (7)
  - Palpitations [Unknown]
  - Eye disorder [Unknown]
  - Headache [Unknown]
  - Abdominal pain upper [Unknown]
  - Fatigue [Unknown]
  - Hernia [Unknown]
  - Product storage error [Unknown]

NARRATIVE: CASE EVENT DATE: 201907
